FAERS Safety Report 8429093 (Version 4)
Quarter: 2013Q1

REPORT INFORMATION
  Report Type: Spontaneous
  Country: US (occurrence: US)
  Receive Date: 20120227
  Receipt Date: 20130102
  Transmission Date: 20140127
  Serious: Yes (Hospitalization, Disabling, Other)
  Sender: FDA-Public Use
  Company Number: US-009507513-1107USA03701

PATIENT
  Sex: 0

DRUGS (3)
  1. FOSAMAX [Suspect]
     Indication: OSTEOARTHRITIS
     Dosage: 35 MG, QW
     Route: 048
     Dates: start: 2000, end: 20081211
  2. FOSAMAX [Suspect]
     Indication: OSTEOPENIA
  3. FOSAMAX [Suspect]
     Indication: OSTEOARTHRITIS
     Dosage: 35 MG, QW
     Route: 048
     Dates: start: 200802, end: 20090220

REACTIONS (132)
  - Tooth abscess [Unknown]
  - Osteitis [Unknown]
  - Renal failure acute [Unknown]
  - Convulsion [Unknown]
  - Osteoarthritis [Unknown]
  - Suicidal ideation [Unknown]
  - Knee arthroplasty [Unknown]
  - Pancytopenia [Recovered/Resolved]
  - Pneumonia [Unknown]
  - Squamous cell carcinoma [Unknown]
  - Anaemia [Unknown]
  - Cerebrovascular accident [Unknown]
  - Haemorrhage [Unknown]
  - Multiple sclerosis [Unknown]
  - Depression [Unknown]
  - Intentional overdose [Unknown]
  - Suicide attempt [Unknown]
  - Wound infection staphylococcal [Unknown]
  - Basal cell carcinoma [Unknown]
  - Osteonecrosis of jaw [Not Recovered/Not Resolved]
  - Dysphagia [Unknown]
  - Osteomyelitis [Unknown]
  - Rhinitis allergic [Unknown]
  - Hallucination, auditory [Unknown]
  - Dental caries [Unknown]
  - Periodontal disease [Unknown]
  - Gastric disorder [Unknown]
  - Oral disorder [Unknown]
  - Impaired healing [Unknown]
  - Fistula [Unknown]
  - Asthma [Unknown]
  - Infection [Unknown]
  - Hypothyroidism [Unknown]
  - Mental disorder [Unknown]
  - Gastrointestinal disorder [Unknown]
  - Candida infection [Unknown]
  - Acquired diaphragmatic eventration [Unknown]
  - Pleural fibrosis [Unknown]
  - Atelectasis [Unknown]
  - Mouth injury [Unknown]
  - Essential hypertension [Unknown]
  - Hypertriglyceridaemia [Unknown]
  - Chronic obstructive pulmonary disease [Unknown]
  - Coronary artery disease [Unknown]
  - Sensitivity of teeth [Unknown]
  - Staphylococcal infection [Unknown]
  - Oral fibroma [Unknown]
  - Oral pain [Unknown]
  - Cholelithiasis [Unknown]
  - Intervertebral disc degeneration [Unknown]
  - Intervertebral disc protrusion [Unknown]
  - Meniscus injury [Unknown]
  - Medical device complication [Unknown]
  - Tooth fracture [Unknown]
  - Periodontitis [Unknown]
  - Bronchitis chronic [Unknown]
  - Glucose tolerance impaired [Unknown]
  - Bruxism [Unknown]
  - Dry mouth [Unknown]
  - Device related infection [Unknown]
  - Postoperative fever [Unknown]
  - Pollakiuria [Unknown]
  - Memory impairment [Unknown]
  - Haemorrhage subcutaneous [Unknown]
  - Peptic ulcer [Unknown]
  - Angina pectoris [Unknown]
  - Palpitations [Unknown]
  - Arrhythmia [Unknown]
  - Dyspnoea [Unknown]
  - Sinus disorder [Unknown]
  - Anxiety [Unknown]
  - Irritable bowel syndrome [Unknown]
  - Fracture [Unknown]
  - Cataract [Unknown]
  - Cough [Unknown]
  - Nasopharyngitis [Unknown]
  - Increased tendency to bruise [Unknown]
  - Cardiac murmur [Unknown]
  - Infectious mononucleosis [Unknown]
  - Nervous system disorder [Unknown]
  - Temporomandibular joint syndrome [Unknown]
  - Swelling [Unknown]
  - Exostosis of jaw [Unknown]
  - Exostosis of jaw [Unknown]
  - Tongue geographic [Unknown]
  - Oral candidiasis [Unknown]
  - Amalgam tattoo [Unknown]
  - Onycholysis [Unknown]
  - Seborrhoeic keratosis [Unknown]
  - Peripheral vascular disorder [Unknown]
  - Kyphosis [Unknown]
  - Hypoaesthesia [Unknown]
  - Pain [Unknown]
  - Sciatic nerve injury [Unknown]
  - Carpal tunnel syndrome [Unknown]
  - Joint injury [Unknown]
  - Cardiomegaly [Unknown]
  - Tremor [Unknown]
  - Hyperlipidaemia [Unknown]
  - Seasonal affective disorder [Unknown]
  - Restless legs syndrome [Unknown]
  - Mitral valve incompetence [Unknown]
  - Tricuspid valve incompetence [Unknown]
  - Oral neoplasm benign [Unknown]
  - Joint injury [Unknown]
  - Device failure [Unknown]
  - Rib fracture [Unknown]
  - Weight increased [Unknown]
  - Blood sodium decreased [Unknown]
  - Gait disturbance [Unknown]
  - Fall [Unknown]
  - Rotator cuff syndrome [Unknown]
  - Hyponatraemia [Unknown]
  - Rotator cuff syndrome [Unknown]
  - Spinal column stenosis [Unknown]
  - Hypokalaemia [Unknown]
  - Adverse event [Unknown]
  - Bruxism [Unknown]
  - Malaise [Unknown]
  - Dizziness [Unknown]
  - Urticaria [Unknown]
  - Rash [Unknown]
  - Gastric ulcer [Unknown]
  - Off label use [Unknown]
  - Tongue ulceration [Recovered/Resolved]
  - Oedema peripheral [Unknown]
  - Duodenal ulcer [Unknown]
  - Gastritis [Unknown]
  - Gastrooesophageal reflux disease [Unknown]
  - Muscle spasms [Unknown]
  - Headache [Unknown]
  - Pain in jaw [Unknown]
